FAERS Safety Report 13403707 (Version 1)
Quarter: 2017Q2

REPORT INFORMATION
  Report Type: Spontaneous
  Country: AU (occurrence: AU)
  Receive Date: 20170405
  Receipt Date: 20170405
  Transmission Date: 20170830
  Serious: Yes (Hospitalization)
  Sender: FDA-Public Use
  Company Number: PHHY2017AU044913

PATIENT
  Sex: Female

DRUGS (1)
  1. COSENTYX [Suspect]
     Active Substance: SECUKINUMAB
     Indication: PSORIASIS
     Dosage: 300 MG, QMO
     Route: 058
     Dates: start: 20160614, end: 20170322

REACTIONS (5)
  - Dyspnoea [Unknown]
  - Drug administration error [Unknown]
  - Urticaria [Recovered/Resolved]
  - Injection site bruising [Unknown]
  - Dizziness [Unknown]

NARRATIVE: CASE EVENT DATE: 20170305
